APPROVED DRUG PRODUCT: DESOXYN
Active Ingredient: METHAMPHETAMINE HYDROCHLORIDE
Strength: 10MG
Dosage Form/Route: TABLET, EXTENDED RELEASE;ORAL
Application: N005378 | Product #003
Applicant: AJENAT PHARMACEUTICALS LLC
Approved: Approved Prior to Jan 1, 1982 | RLD: No | RS: No | Type: DISCN